FAERS Safety Report 21323620 (Version 1)
Quarter: 2022Q3

REPORT INFORMATION
  Report Type: Spontaneous
  Country: IL (occurrence: IL)
  Receive Date: 20220912
  Receipt Date: 20220912
  Transmission Date: 20221027
  Serious: Yes (Hospitalization, Other)
  Sender: FDA-Public Use
  Company Number: IL-DEXPHARM-20221538

PATIENT
  Age: 30 Year
  Sex: Female

DRUGS (4)
  1. VENLAFAXINE HYDROCHLORIDE [Suspect]
     Active Substance: VENLAFAXINE HYDROCHLORIDE
     Indication: Anxiety disorder
     Dates: start: 2020
  2. Altman Femina 9 months [Concomitant]
     Dosage: ALTMAN PRENATAL SUPPLEMENT
  3. HUMALOG [Concomitant]
     Active Substance: INSULIN LISPRO
     Indication: Gestational diabetes
     Dosage: INSULIN LISPRO INJECTION, 1 UNIT DIVIDED 0.5 IN THE MORNING, 0.5 WITH LUNCH
  4. LEVEMIR [Concomitant]
     Active Substance: INSULIN DETEMIR
     Indication: Gestational diabetes
     Dosage: INSULIN DETEMIR INJECTION, 18 UNITS DAILY

REACTIONS (2)
  - Maternal exposure during pregnancy [Recovered/Resolved]
  - Premature separation of placenta [Recovered/Resolved]

NARRATIVE: CASE EVENT DATE: 20220823
